FAERS Safety Report 9322457 (Version 1)
Quarter: 2013Q2

REPORT INFORMATION
  Report Type: Other
  Country: SE (occurrence: SE)
  Receive Date: 20130531
  Receipt Date: 20130531
  Transmission Date: 20140414
  Serious: Yes (Death, Life-Threatening, Hospitalization)
  Sender: FDA-Public Use
  Company Number: SE-ACTELION-A-CH2013-83598

PATIENT
  Age: 43 Year
  Sex: Male

DRUGS (4)
  1. TRACLEER [Suspect]
     Indication: PULMONARY ARTERIAL HYPERTENSION
     Route: 048
  2. TREPROSTINIL [Suspect]
  3. SILDENAFIL [Concomitant]
  4. WARFARIN [Concomitant]

REACTIONS (16)
  - Right ventricular failure [Fatal]
  - Hypotension [Fatal]
  - Ascites [Fatal]
  - Oedema peripheral [Fatal]
  - Intra-abdominal haemorrhage [Recovered/Resolved]
  - Abdominal pain [Recovered/Resolved]
  - Abdominal distension [Recovered/Resolved]
  - Haemoglobin decreased [Recovered/Resolved]
  - Gastritis erosive [Unknown]
  - Gastrointestinal haemorrhage [Unknown]
  - Infusion site reaction [Unknown]
  - Infusion site pain [Unknown]
  - Scrotal oedema [Unknown]
  - Blood product transfusion [Unknown]
  - Packed red blood cell transfusion [Unknown]
  - Platelet transfusion [Unknown]
